FAERS Safety Report 10594291 (Version 1)
Quarter: 2014Q4

REPORT INFORMATION
  Report Type: Spontaneous
  Country: US (occurrence: US)
  Receive Date: 20141119
  Receipt Date: 20141119
  Transmission Date: 20150529
  Serious: Yes (Other)
  Sender: FDA-Public Use
  Company Number: US-TEVA-522648USA

PATIENT
  Sex: Female

DRUGS (1)
  1. CLARAVIS [Suspect]
     Active Substance: ISOTRETINOIN
     Route: 048
     Dates: start: 20140903, end: 20141003

REACTIONS (3)
  - Pain [Unknown]
  - Haemorrhage [Unknown]
  - Cyst [Unknown]

NARRATIVE: CASE EVENT DATE: 2014
